FAERS Safety Report 6674401-5 (Version None)
Quarter: 2010Q2

REPORT INFORMATION
  Report Type: 
  Country: None (occurrence: None)
  Receive Date: 20100409
  Receipt Date: 20100329
  Transmission Date: 20101027
  Serious: Yes (Other)
  Sender: FDA-Public Use
  Company Number: DE-PFIZER INC-2010007736

PATIENT
  Age: 70 Year
  Sex: Female
  Weight: 68.5 kg

DRUGS (2)
  1. CABERGOLINE [Suspect]
     Indication: PARKINSON'S DISEASE
     Dosage: 2 MG, 2X/DAY
     Route: 048
     Dates: start: 20060201, end: 20070801
  2. CABERGOLINE [Suspect]
     Dosage: 1.5 MG, 2X/DAY
     Route: 048
     Dates: start: 20070801

REACTIONS (5)
  - DIZZINESS [None]
  - DRUG INEFFECTIVE [None]
  - FEELING ABNORMAL [None]
  - OEDEMA PERIPHERAL [None]
  - VISUAL IMPAIRMENT [None]
